FAERS Safety Report 21994866 (Version 1)
Quarter: 2023Q1

REPORT INFORMATION
  Report Type: Spontaneous
  Country: US (occurrence: US)
  Receive Date: 20230215
  Receipt Date: 20230215
  Transmission Date: 20230417
  Serious: No
  Sender: FDA-Public Use
  Company Number: US-IBSA PHARMA INC.-2022-IBS-01820

PATIENT
  Age: 69 Year
  Sex: Female
  Weight: 59.87 kg

DRUGS (1)
  1. LICART [Suspect]
     Active Substance: DICLOFENAC EPOLAMINE
     Indication: Pain
     Route: 061
     Dates: start: 202202, end: 202202

REACTIONS (2)
  - Application site pain [None]
  - Rash macular [None]

NARRATIVE: CASE EVENT DATE: 20220201
